FAERS Safety Report 9724819 (Version 1)
Quarter: 2013Q4

REPORT INFORMATION
  Report Type: Spontaneous
  Country: JP (occurrence: JP)
  Receive Date: 20131202
  Receipt Date: 20131202
  Transmission Date: 20140711
  Serious: Yes (Hospitalization)
  Sender: FDA-Public Use
  Company Number: JP-MYLANLABS-2013S1026604

PATIENT
  Age: 82 Year
  Sex: Female
  Weight: 42 kg

DRUGS (8)
  1. WARFARIN [Suspect]
     Dosage: 2 MG/DAY
     Route: 048
     Dates: start: 2003
  2. ENALAPRIL [Concomitant]
     Dosage: 5 MG/DAY
     Route: 065
  3. ALLOPURINOL [Concomitant]
     Dosage: 100 MG/DAY
     Route: 065
  4. FUROSEMIDE [Concomitant]
     Dosage: 40 MG/DAY
     Route: 065
  5. PRAVASTATIN [Concomitant]
     Dosage: 10 MG/DAY
     Route: 065
  6. ASPIRIN [Concomitant]
     Dosage: 100 MG/DAY
     Route: 065
  7. RABEPRAZOLE [Concomitant]
     Dosage: 20 MG/DAY
     Route: 065
  8. SODIUM FERROUS CITRATE [Concomitant]
     Dosage: 100 MG/DAY
     Route: 065

REACTIONS (1)
  - Renal failure acute [Recovered/Resolved]
